FAERS Safety Report 4538200-2 (Version None)
Quarter: 2004Q4

REPORT INFORMATION
  Report Type: 
  Country: None (occurrence: None)
  Receive Date: 20041221
  Receipt Date: 20041208
  Transmission Date: 20050328
  Serious: Yes (Hospitalization)
  Sender: FDA-Public Use
  Company Number: 2004108064

PATIENT
  Age: 75 Year
  Sex: Female

DRUGS (6)
  1. PREDNISOLONE [Suspect]
     Indication: POLYMYALGIA RHEUMATICA
     Dosage: 40-80 MILLIGRAM (1 IN 1 D), ORAL
     Route: 048
  2. ASPIRIN [Concomitant]
  3. METFORMIN HCL [Concomitant]
  4. ATORVASTATIN (ATORVASTATIN) [Concomitant]
  5. MOXONIDINE (MOXONIDINE) [Concomitant]
  6. IRBESARTAN [Concomitant]

REACTIONS (2)
  - DEHYDRATION [None]
  - DIABETES MELLITUS [None]
